FAERS Safety Report 17080048 (Version 1)
Quarter: 2019Q4

REPORT INFORMATION
  Report Type: Report from Study
  Country: None (occurrence: LB)
  Receive Date: 20191127
  Receipt Date: 20191127
  Transmission Date: 20200122
  Serious: Yes (Other)
  Sender: FDA-Public Use
  Company Number: LB-ABBVIE-19K-093-3013585-00

PATIENT
  Sex: Female
  Weight: 4 kg

DRUGS (1)
  1. HUMIRA [Suspect]
     Active Substance: ADALIMUMAB
     Indication: MATERNAL EXPOSURE TIMING UNSPECIFIED
     Route: 064

REACTIONS (3)
  - Nervous system disorder [Not Recovered/Not Resolved]
  - Foetal exposure during pregnancy [Unknown]
  - Head circumference abnormal [Recovered/Resolved]
